FAERS Safety Report 23632837 (Version 1)
Quarter: 2024Q1

REPORT INFORMATION
  Report Type: Spontaneous
  Country: US (occurrence: None)
  Receive Date: 20240314
  Receipt Date: 20240314
  Transmission Date: 20240410
  Serious: Yes (Death)
  Sender: FDA-Public Use
  Company Number: None

PATIENT
  Age: 67 Year
  Sex: Male

DRUGS (2)
  1. ABIRATERONE [Suspect]
     Active Substance: ABIRATERONE
     Indication: Metastasis
     Dosage: FREQUENCY : DAILY;?
  2. ABIRATERONE [Suspect]
     Active Substance: ABIRATERONE
     Indication: Bone cancer

REACTIONS (1)
  - Death [None]
